FAERS Safety Report 13893376 (Version 1)
Quarter: 2017Q3

REPORT INFORMATION
  Report Type: Spontaneous
  Country: US (occurrence: US)
  Receive Date: 20170822
  Receipt Date: 20170822
  Transmission Date: 20171127
  Serious: No
  Sender: FDA-Public Use
  Company Number: US-ROCHE-765125

PATIENT
  Age: 62 Year
  Sex: Female
  Weight: 76.2 kg

DRUGS (37)
  1. ENBREL [Concomitant]
     Active Substance: ETANERCEPT
     Dosage: SURECK PEN-3
     Route: 065
  2. CYCLOBENZAPRINE. [Concomitant]
     Active Substance: CYCLOBENZAPRINE
     Dosage: ONCE EVERY NIGHT
     Route: 065
  3. ERYTHROMYCIN. [Concomitant]
     Active Substance: ERYTHROMYCIN
     Dosage: 5 MG/GM EYE OI
     Route: 065
  4. KETOTIFEN FUMARATE. [Concomitant]
     Active Substance: KETOTIFEN FUMARATE
     Dosage: ORIGINAL DRUG: KETOTIFEN FUM 0.025 % EYE D
     Route: 065
  5. ZOLPIDEM [Concomitant]
     Active Substance: ZOLPIDEM\ZOLPIDEM TARTRATE
     Dosage: TAKEN AT NIGHT
     Route: 065
  6. ZOLPIDEM [Concomitant]
     Active Substance: ZOLPIDEM\ZOLPIDEM TARTRATE
     Dosage: TAKEN AT NIGHT
     Route: 065
  7. PREDNISONE. [Concomitant]
     Active Substance: PREDNISONE
     Dosage: FREQUENCY: 1 TAB AM
     Route: 065
  8. FLUTICASONE. [Concomitant]
     Active Substance: FLUTICASONE
     Dosage: NASAL SPRAY
     Route: 065
  9. THYROID [Concomitant]
     Active Substance: LEVOTHYROXINE\LIOTHYRONINE
     Indication: HYPOTHYROIDISM
     Dosage: FREQUENCY: QD
     Route: 065
     Dates: start: 20100813, end: 20100814
  10. ENBREL [Concomitant]
     Active Substance: ETANERCEPT
     Dosage: 50 MG/ML SYRINGE
     Route: 065
  11. LORATADINE. [Concomitant]
     Active Substance: LORATADINE
     Route: 065
  12. PREMARIN VAGINAL [Concomitant]
     Active Substance: ESTROGENS, CONJUGATED
     Dosage: EVERY NIGHT
     Route: 065
  13. NORTRIPTYLINE [Concomitant]
     Active Substance: NORTRIPTYLINE
     Dosage: ONCE EVERY NIGHT
     Route: 065
  14. AMOXICILLIN. [Concomitant]
     Active Substance: AMOXICILLIN
     Route: 065
  15. FLUTICASONE. [Concomitant]
     Active Substance: FLUTICASONE
     Dosage: NASAL SPRAY
     Route: 065
  16. LORATADINE. [Concomitant]
     Active Substance: LORATADINE
     Route: 065
  17. LIPITOR [Concomitant]
     Active Substance: ATORVASTATIN CALCIUM
     Indication: BLOOD CHOLESTEROL
     Route: 065
  18. LIPITOR [Concomitant]
     Active Substance: ATORVASTATIN CALCIUM
     Route: 065
  19. MELOXICAM. [Concomitant]
     Active Substance: MELOXICAM
     Route: 065
  20. IBUPROFEN. [Concomitant]
     Active Substance: IBUPROFEN
     Route: 065
  21. ALBUTEROL. [Concomitant]
     Active Substance: ALBUTEROL
     Route: 065
  22. HUMIRA [Concomitant]
     Active Substance: ADALIMUMAB
     Dosage: 40 MG/ 0.8 ML SYRG, QUANTITY 2
     Route: 065
  23. ZOLPIDEM [Concomitant]
     Active Substance: ZOLPIDEM\ZOLPIDEM TARTRATE
     Indication: SOMNOLENCE
     Dosage: TAKEN AT NIGHT
     Route: 065
  24. MELOXICAM. [Concomitant]
     Active Substance: MELOXICAM
     Route: 065
  25. ARMOUR THYROID [Concomitant]
     Active Substance: THYROID, PORCINE
     Dosage: INDICATION: THYROID
     Route: 065
  26. PREDNISONE. [Concomitant]
     Active Substance: PREDNISONE
     Route: 065
  27. THYROID [Concomitant]
     Active Substance: LEVOTHYROXINE\LIOTHYRONINE
     Route: 065
  28. PLAQUENIL [Concomitant]
     Active Substance: HYDROXYCHLOROQUINE SULFATE
     Indication: RHEUMATOID ARTHRITIS
     Route: 065
  29. ACTEMRA [Suspect]
     Active Substance: TOCILIZUMAB
     Indication: RHEUMATOID ARTHRITIS
     Dosage: FORM: INFUSION
     Route: 042
  30. ZOLPIDEM [Concomitant]
     Active Substance: ZOLPIDEM\ZOLPIDEM TARTRATE
     Dosage: TAKEN AT NIGHT
     Route: 065
  31. ENBREL [Concomitant]
     Active Substance: ETANERCEPT
     Dosage: SURECK PEN-3
     Route: 065
  32. LIPITOR [Concomitant]
     Active Substance: ATORVASTATIN CALCIUM
     Route: 065
  33. ACETAMINOPHEN. [Concomitant]
     Active Substance: ACETAMINOPHEN
     Dosage: CAPLETS, ONCE EVERY 4-6 HOURS
     Route: 065
  34. ACETAMINOPHEN. [Concomitant]
     Active Substance: ACETAMINOPHEN
     Dosage: CAPLETS
     Route: 065
  35. AZITHROMYCIN ANHYDROUS. [Concomitant]
     Active Substance: AZITHROMYCIN ANHYDROUS
     Route: 065
  36. HYDROXYCHLOROQUINE [Concomitant]
     Active Substance: HYDROXYCHLOROQUINE
     Route: 065
  37. HYDROXYCHLOROQUINE [Concomitant]
     Active Substance: HYDROXYCHLOROQUINE
     Route: 065

REACTIONS (6)
  - Tic [Recovered/Resolved]
  - Abdominal pain upper [Recovering/Resolving]
  - Flatulence [Recovered/Resolved]
  - Abdominal distension [Recovering/Resolving]
  - Constipation [Recovered/Resolved]
  - Rash [Unknown]

NARRATIVE: CASE EVENT DATE: 20110218
